FAERS Safety Report 7757951-X (Version None)
Quarter: 2011Q3

REPORT INFORMATION
  Report Type: 
  Country: None (occurrence: None)
  Receive Date: 20110919
  Receipt Date: 20110908
  Transmission Date: 20111222
  Serious: Yes (Hospitalization)
  Sender: FDA-Public Use
  Company Number: 2005BI010965

PATIENT
  Age: 46 Year
  Sex: Male

DRUGS (3)
  1. AVONEX [Suspect]
     Indication: MULTIPLE SCLEROSIS
     Route: 030
     Dates: start: 20040909, end: 20050617
  2. AVONEX [Suspect]
     Route: 030
     Dates: start: 20090831
  3. AVONEX [Suspect]
     Route: 030
     Dates: start: 20040909, end: 20050617

REACTIONS (4)
  - RED BLOOD CELL COUNT INCREASED [None]
  - CONVULSION [None]
  - LUNG NEOPLASM MALIGNANT [None]
  - WHITE BLOOD CELL COUNT DECREASED [None]
